FAERS Safety Report 6361138-5 (Version None)
Quarter: 2009Q3

REPORT INFORMATION
  Report Type: 
  Country: None (occurrence: None)
  Receive Date: 20090918
  Receipt Date: 20090908
  Transmission Date: 20100115
  Serious: Yes (Other)
  Sender: FDA-Public Use
  Company Number: US-PFIZER INC-2007015076

PATIENT
  Sex: Male

DRUGS (8)
  1. VIAGRA [Suspect]
     Indication: ERECTILE DYSFUNCTION
     Dosage: 100 MG, UNK
     Route: 048
     Dates: start: 20020204, end: 20050601
  2. DOXAZOSIN [Concomitant]
     Dosage: 8 MG, UNK
  3. HYDROCODIN [Concomitant]
     Dosage: UNK
     Dates: start: 20020101, end: 20021211
  4. ACETYLSALICYLIC ACID [Concomitant]
     Dosage: 325 MG, 1X/DAY
  5. VITAMINS [Concomitant]
     Dosage: UNK
  6. FIBRE, DIETARY [Concomitant]
     Dosage: UNK
  7. BETA PROSTATE [Concomitant]
     Dosage: 300 MG, UNK
  8. GLUCOSAMINE [Concomitant]
     Dosage: 500 MG, UNK

REACTIONS (2)
  - BLINDNESS UNILATERAL [None]
  - OPTIC ISCHAEMIC NEUROPATHY [None]
